FAERS Safety Report 13259130 (Version 1)
Quarter: 2017Q1

REPORT INFORMATION
  Report Type: Spontaneous
  Country: US (occurrence: US)
  Receive Date: 20170221
  Receipt Date: 20170221
  Transmission Date: 20170428
  Serious: Yes (Death)
  Sender: FDA-Public Use
  Company Number: None

PATIENT
  Age: 58 Year
  Sex: Male

DRUGS (9)
  1. OPDIVO [Suspect]
     Active Substance: NIVOLUMAB
     Indication: NEOPLASM MALIGNANT
     Route: 042
     Dates: start: 20160722
  2. BACLOFEN. [Concomitant]
     Active Substance: BACLOFEN
  3. CYCLOBENZAPRINE [Concomitant]
     Active Substance: CYCLOBENZAPRINE
  4. GABAPENTIN. [Concomitant]
     Active Substance: GABAPENTIN
  5. IPRATROPIUM [Concomitant]
     Active Substance: IPRATROPIUM
  6. HYDROMORPHONE [Concomitant]
     Active Substance: HYDROMORPHONE
  7. LORAZEPAM. [Concomitant]
     Active Substance: LORAZEPAM
  8. ATROPINE. [Concomitant]
     Active Substance: ATROPINE
  9. METHADONE [Concomitant]
     Active Substance: METHADONE HYDROCHLORIDE

REACTIONS (1)
  - Death [None]

NARRATIVE: CASE EVENT DATE: 20170220
